FAERS Safety Report 24637749 (Version 1)
Quarter: 2024Q4

REPORT INFORMATION
  Report Type: Spontaneous
  Country: AU (occurrence: AU)
  Receive Date: 20241119
  Receipt Date: 20241119
  Transmission Date: 20250114
  Serious: Yes (Other)
  Sender: DR REDDYS
  Company Number: AU-AUS-LIT/AUS/24/0016955

PATIENT
  Age: 22 Year
  Sex: Male

DRUGS (4)
  1. CETIRIZINE [Suspect]
     Active Substance: CETIRIZINE HYDROCHLORIDE
     Indication: Anaphylactic reaction
  2. OMALIZUMAB [Concomitant]
     Active Substance: OMALIZUMAB
     Indication: Anaphylactic reaction
  3. NIZATIDINE [Concomitant]
     Active Substance: NIZATIDINE
     Indication: Anaphylactic reaction
  4. MONTELUKAST [Concomitant]
     Active Substance: MONTELUKAST
     Indication: Anaphylactic reaction

REACTIONS (1)
  - Drug ineffective for unapproved indication [Unknown]
